FAERS Safety Report 9261034 (Version 1)
Quarter: 2013Q2

REPORT INFORMATION
  Report Type: Spontaneous
  Country: US (occurrence: US)
  Receive Date: 20130429
  Receipt Date: 20130429
  Transmission Date: 20140414
  Serious: No
  Sender: FDA-Public Use
  Company Number: US-AMGEN-USASP2012055317

PATIENT
  Age: 54 Year
  Sex: Male

DRUGS (1)
  1. SENSIPAR [Suspect]
     Indication: HYPERCALCAEMIA
     Dosage: 60 MG, UNK
     Route: 048
     Dates: end: 20120815

REACTIONS (1)
  - Incorrect drug dosage form administered [Unknown]
